FAERS Safety Report 13167888 (Version 1)
Quarter: 2017Q1

REPORT INFORMATION
  Report Type: Spontaneous
  Country: FR (occurrence: FR)
  Receive Date: 20170131
  Receipt Date: 20170131
  Transmission Date: 20170428
  Serious: Yes (Other)
  Sender: FDA-Public Use
  Company Number: FR-PFIZER INC-2017038257

PATIENT
  Age: 60 Year

DRUGS (4)
  1. SIROLIMUS. [Suspect]
     Active Substance: SIROLIMUS
     Indication: LARYNGEAL CANCER
     Dosage: 1 MG, DAILY
  2. MYCOPHENOLATE MOFETIL /01275104/ [Concomitant]
     Active Substance: MYCOPHENOLATE MOFETIL
     Indication: LARYNGEAL CANCER
     Dosage: 1 MG, DAILY
  3. CETUXIMAB. [Suspect]
     Active Substance: CETUXIMAB
     Dosage: 125 MG/M2, UNK
  4. CETUXIMAB. [Suspect]
     Active Substance: CETUXIMAB
     Indication: LARYNGEAL CANCER
     Dosage: 200 MG/M2,

REACTIONS (5)
  - Radiation skin injury [Recovered/Resolved]
  - Erythema [Recovered/Resolved]
  - Mucosal inflammation [Recovered/Resolved]
  - Product use issue [Unknown]
  - Dermatitis acneiform [Recovered/Resolved]
